FAERS Safety Report 15103386 (Version 1)
Quarter: 2018Q3

REPORT INFORMATION
  Report Type: Other
  Country: JP (occurrence: JP)
  Receive Date: 20180703
  Receipt Date: 20180703
  Transmission Date: 20181010
  Serious: Yes (Other)
  Sender: FDA-Public Use
  Company Number: JP-ACTELION-A-CH2018-174348

PATIENT
  Weight: 1.29 kg

DRUGS (2)
  1. EPOPROSTENOL SODIUM. [Suspect]
     Active Substance: EPOPROSTENOL SODIUM
     Indication: MATERNAL EXPOSURE DURING PREGNANCY
     Route: 064
  2. BOSENTAN. [Suspect]
     Active Substance: BOSENTAN
     Indication: MATERNAL EXPOSURE DURING PREGNANCY
     Route: 064

REACTIONS (2)
  - Maternal exposure during pregnancy [Unknown]
  - Premature baby [Unknown]
